FAERS Safety Report 5969895-4 (Version None)
Quarter: 2008Q4

REPORT INFORMATION
  Report Type: 
  Country: None (occurrence: None)
  Receive Date: 20081126
  Receipt Date: 20081117
  Transmission Date: 20090506
  Serious: Yes (Other)
  Sender: FDA-Public Use
  Company Number: CH-PFIZER INC-2008096871

PATIENT
  Age: 48 Year
  Sex: Male
  Weight: 70 kg

DRUGS (4)
  1. SUTENT [Suspect]
     Indication: RENAL CANCER
     Route: 048
     Dates: start: 20071101
  2. SORAFENIB [Suspect]
     Indication: RENAL CANCER
     Route: 048
     Dates: start: 20070101
  3. INTERFERON ALFA [Suspect]
     Indication: RENAL CANCER
     Dates: start: 20070101
  4. ZOMETA [Suspect]
     Indication: RENAL CANCER
     Route: 042
     Dates: start: 20060101, end: 20080401

REACTIONS (2)
  - OSTEOMYELITIS [None]
  - OSTEONECROSIS [None]
